FAERS Safety Report 8911644 (Version 14)
Quarter: 2016Q1

REPORT INFORMATION
  Report Type: Report from Study
  Country: FI (occurrence: FI)
  Receive Date: 20121115
  Receipt Date: 20160202
  Transmission Date: 20160526
  Serious: Yes (Hospitalization)
  Sender: FDA-Public Use
  Company Number: FI-ROCHE-1152822

PATIENT
  Age: 52 Year
  Sex: Female

DRUGS (32)
  1. PERTUZUMAB [Suspect]
     Active Substance: PERTUZUMAB
     Dosage: MOST RECENT DOSE PRIOR TO EVENT: 25/OCT/2012
     Route: 042
     Dates: start: 20120823, end: 20121102
  2. TRASTUZUMAB [Suspect]
     Active Substance: TRASTUZUMAB
     Dosage: THERAPY RESTARTED?LAST DOSE PRIOR TO 2ND EVENT OF ERYSIPELAS LEFT ARM 24/OCT/2014
     Route: 042
     Dates: start: 20121130
  3. SOMAC ENTEROTAB [Concomitant]
     Dosage: PRN
     Route: 065
     Dates: start: 20150325
  4. PERTUZUMAB [Suspect]
     Active Substance: PERTUZUMAB
     Indication: HER-2 POSITIVE BREAST CANCER
     Route: 042
     Dates: start: 20120802, end: 20120802
  5. PERTUZUMAB [Suspect]
     Active Substance: PERTUZUMAB
     Dosage: LAST DOSE PRIOR TO SECOND OCCURENCE OF PNEUMONIA 14/NOV/2014
     Route: 042
  6. TRASTUZUMAB [Suspect]
     Active Substance: TRASTUZUMAB
     Dosage: LAST DOSE PRIOR TO SECOND OCCURENCE OF PNEUMONIA 14/NOV/2014?MAINTENANCE DOSE PER PROTOCOL 6MG/KG
     Route: 042
  7. ZOMETA [Concomitant]
     Active Substance: ZOLEDRONIC ACID
     Route: 042
     Dates: start: 20120802
  8. BURANA [Concomitant]
     Active Substance: IBUPROFEN
     Indication: PAIN
     Dosage: 1200-1800 MG AS TOTAL DAILY DOSE
     Route: 065
     Dates: start: 20120713, end: 20130214
  9. NEULASTA [Concomitant]
     Active Substance: PEGFILGRASTIM
     Indication: PROPHYLAXIS
     Route: 058
     Dates: start: 20120803, end: 20121201
  10. ROXITHROMYCIN [Concomitant]
     Active Substance: ROXITHROMYCIN
     Dosage: 150MGX1
     Route: 048
     Dates: start: 20141211, end: 20151120
  11. TRASTUZUMAB [Suspect]
     Active Substance: TRASTUZUMAB
     Dosage: MOST RECENT DOSE PRIOR TO EVENT: 25/OCT/2012
     Route: 042
     Dates: start: 20120823, end: 20121102
  12. DOCETAXEL. [Suspect]
     Active Substance: DOCETAXEL
     Indication: HER-2 POSITIVE BREAST CANCER
     Dosage: MOST RECENT DOSE PRIOR TO SAE WAS TAKEN ON 25/OCT/2012
     Route: 042
     Dates: start: 20120802
  13. ZOMETA [Concomitant]
     Active Substance: ZOLEDRONIC ACID
     Indication: METASTASES TO BONE
     Route: 042
     Dates: start: 20120802, end: 20140801
  14. IMOCUR (FINLAND) [Concomitant]
     Route: 065
     Dates: start: 20120802, end: 20120923
  15. TRASTUZUMAB [Suspect]
     Active Substance: TRASTUZUMAB
     Indication: HER-2 POSITIVE BREAST CANCER
     Route: 042
     Dates: start: 20120802, end: 20120802
  16. SOMAC ENTEROTAB [Concomitant]
     Indication: PROPHYLAXIS
     Route: 065
     Dates: start: 20120801, end: 20130618
  17. DEXAMETHASON [Concomitant]
     Active Substance: DEXAMETHASONE
     Indication: NAUSEA
     Route: 048
     Dates: start: 20120801, end: 20121202
  18. DEXAMETHASON [Concomitant]
     Active Substance: DEXAMETHASONE
     Indication: HYPERSENSITIVITY
  19. ZOVIRAX [Concomitant]
     Active Substance: ACYCLOVIR
     Dosage: 5%X5/DAY
     Route: 061
     Dates: start: 20141101, end: 20141107
  20. KLEXANE [Concomitant]
     Active Substance: ENOXAPARIN
     Indication: PROPHYLAXIS
     Route: 058
     Dates: start: 20141120, end: 20141127
  21. KALEORID [Concomitant]
     Active Substance: POTASSIUM CHLORIDE
     Indication: PROPHYLAXIS
     Route: 048
     Dates: start: 20141121, end: 20141127
  22. DOCETAXEL. [Suspect]
     Active Substance: DOCETAXEL
     Dosage: DOSE REDUCED
     Route: 042
     Dates: start: 20121130
  23. SOMAC ENTEROTAB [Concomitant]
     Route: 048
     Dates: start: 20121110, end: 20130618
  24. ZYRTEC [Concomitant]
     Active Substance: CETIRIZINE HYDROCHLORIDE
     Indication: HYPERSENSITIVITY
     Dosage: BEFORE INFUSION
     Route: 048
     Dates: start: 20120802
  25. SOMAC ENTEROTAB [Concomitant]
     Route: 048
     Dates: start: 20131119
  26. SOMAC ENTEROTAB [Concomitant]
     Route: 048
     Dates: start: 20141119, end: 20150324
  27. PANDOL [Concomitant]
     Active Substance: HALOPERIDOL
     Indication: PROPHYLAXIS
     Route: 048
     Dates: start: 20120802
  28. PERTUZUMAB [Suspect]
     Active Substance: PERTUZUMAB
     Dosage: THERAPY RESTARTED?LAST DOSE PRIOR TO 2ND EVENT OF ERYSIPELAS LEFT ARM 24/OCT/2014
     Route: 042
     Dates: start: 20121130
  29. ZOMETA [Concomitant]
     Active Substance: ZOLEDRONIC ACID
     Route: 042
     Dates: start: 20140801, end: 20150717
  30. CALCICHEW D3 [Concomitant]
     Active Substance: CALCIUM\CHOLECALCIFEROL
     Indication: METASTASES TO BONE
     Dosage: 1000MG/20 MICROGRAM
     Route: 065
     Dates: start: 20120801
  31. FURESIS [Concomitant]
     Active Substance: FUROSEMIDE
     Route: 042
     Dates: start: 20141119, end: 20141122
  32. ATROVENT [Concomitant]
     Active Substance: IPRATROPIUM BROMIDE
     Route: 065
     Dates: start: 20141119, end: 20141127

REACTIONS (4)
  - Erysipelas [Recovered/Resolved]
  - Erysipelas [Recovered/Resolved]
  - Pneumonia [Recovered/Resolved]
  - Pneumonia [Recovered/Resolved]

NARRATIVE: CASE EVENT DATE: 20121102
